FAERS Safety Report 5225623-1 (Version None)
Quarter: 2007Q1

REPORT INFORMATION
  Report Type: 
  Country: None (occurrence: None)
  Receive Date: 20070129
  Receipt Date: 20070123
  Transmission Date: 20070707
  Serious: Yes (Other)
  Sender: FDA-Public Use
  Company Number: 2006SP007387

PATIENT
  Sex: Male

DRUGS (3)
  1. PEG-INTRON [Suspect]
     Indication: POLYCYTHAEMIA VERA
     Dosage: SEE IMAGE
     Route: 058
     Dates: start: 20030315, end: 20030709
  2. PEG-INTRON [Suspect]
     Indication: POLYCYTHAEMIA VERA
     Dosage: SEE IMAGE
     Route: 058
     Dates: start: 20030716, end: 20041201
  3. PEG-INTRON [Suspect]
     Indication: POLYCYTHAEMIA VERA
     Dosage: SEE IMAGE
     Route: 058
     Dates: start: 20050101, end: 20050901

REACTIONS (1)
  - PANNICULITIS [None]
